FAERS Safety Report 6533544-7 (Version None)
Quarter: 2010Q1

REPORT INFORMATION
  Report Type: 
  Country: None (occurrence: None)
  Receive Date: 20100108
  Receipt Date: 20100108
  Transmission Date: 20100710
  Serious: No
  Sender: FDA-Public Use
  Company Number: None

PATIENT
  Sex: Male
  Weight: 131.5431 kg

DRUGS (1)
  1. OMEPRAZOLE [Suspect]
     Dosage: 1 CAPSULE DAILY
     Dates: start: 20091210, end: 20091231

REACTIONS (3)
  - PRODUCT CONTAMINATION [None]
  - PRODUCT QUALITY ISSUE [None]
  - PRODUCT SUBSTITUTION ISSUE [None]
